FAERS Safety Report 21118741 (Version 1)
Quarter: 2022Q3

REPORT INFORMATION
  Report Type: Spontaneous
  Country: US (occurrence: None)
  Receive Date: 20220721
  Receipt Date: 20220721
  Transmission Date: 20221027
  Serious: Yes (Hospitalization)
  Sender: FDA-Public Use
  Company Number: None

PATIENT
  Age: 68 Year
  Sex: Male
  Weight: 80 kg

DRUGS (4)
  1. TICAGRELOR [Suspect]
     Active Substance: TICAGRELOR
     Indication: Cardiac operation
     Dosage: FREQUENCY : ONCE;?
     Route: 048
     Dates: start: 20220308, end: 20220308
  2. TICAGRELOR [Suspect]
     Active Substance: TICAGRELOR
     Indication: Vascular operation
  3. ATORVASTATIN [Suspect]
     Active Substance: ATORVASTATIN
     Indication: Cardiac operation
     Dosage: FREQUENCY : ONCE;?
     Route: 048
     Dates: start: 20220309, end: 20220309
  4. ATORVASTATIN [Suspect]
     Active Substance: ATORVASTATIN
     Indication: Vascular operation

REACTIONS (6)
  - Drug eruption [None]
  - Rash [None]
  - Eosinophilia [None]
  - Contrast media reaction [None]
  - Rash papular [None]
  - Skin plaque [None]

NARRATIVE: CASE EVENT DATE: 20220309
